FAERS Safety Report 8515123-5 (Version None)
Quarter: 2012Q3

REPORT INFORMATION
  Report Type: 
  Country: None (occurrence: None)
  Receive Date: 20120717
  Receipt Date: 20120706
  Transmission Date: 20120928
  Serious: Yes (Hospitalization, Other)
  Sender: FDA-Public Use
  Company Number: JP-VERTEX PHARMACEUTICALS INC.-AE-2012-010164

PATIENT
  Age: 56 Year
  Sex: Female

DRUGS (8)
  1. TELAVIC (TELAPREVIR) [Suspect]
     Route: 048
     Dates: start: 20120501
  2. CERONEED [Concomitant]
     Dates: start: 20120412, end: 20120426
  3. TELAVIC (TELAPREVIR) [Suspect]
     Route: 048
     Dates: start: 20120426
  4. RIBAVIRIN [Concomitant]
     Route: 048
     Dates: start: 20120413
  5. PEGINTERFERON ALFA-2B [Concomitant]
     Indication: HEPATITIS C
     Route: 058
     Dates: start: 20120216
  6. TELAVIC (TELAPREVIR) [Suspect]
     Indication: HEPATITIS C
     Route: 048
     Dates: start: 20120216
  7. RIBAVIRIN [Concomitant]
     Indication: HEPATITIS C
     Route: 048
     Dates: start: 20120216
  8. RIBAVIRIN [Concomitant]
     Route: 048
     Dates: start: 20120405

REACTIONS (2)
  - URINARY TRACT INFECTION [None]
  - ANAEMIA [None]
